FAERS Safety Report 24556922 (Version 1)
Quarter: 2024Q4

REPORT INFORMATION
  Report Type: Spontaneous
  Country: US (occurrence: US)
  Receive Date: 20241028
  Receipt Date: 20241028
  Transmission Date: 20250114
  Serious: Yes (Hospitalization, Other)
  Sender: DR REDDYS
  Company Number: US-DRL-USA-SPO/USA/24/0015595

PATIENT
  Age: 33 Year
  Sex: Female

DRUGS (1)
  1. CLOZAPINE [Suspect]
     Active Substance: CLOZAPINE
     Indication: Product used for unknown indication
     Dosage: WHEN THE PATIENTS ARE ADMITTED TO THE HOSPITAL THE PATIENTS TAKE 400 MG
     Route: 065

REACTIONS (2)
  - Bipolar disorder [Unknown]
  - Psychotic disorder [Unknown]
